FAERS Safety Report 10195958 (Version 1)
Quarter: 2014Q2

REPORT INFORMATION
  Report Type: Spontaneous
  Country: CN (occurrence: None)
  Receive Date: 20140521
  Receipt Date: 20140521
  Transmission Date: 20141212
  Serious: Yes (Hospitalization, Other)
  Sender: FDA-Public Use
  Company Number: VAL_03142_2014

PATIENT
  Age: 50 Year
  Sex: Male
  Weight: 69 kg

DRUGS (1)
  1. LOTENSIN (BENAZEPRIL HYDROCHLORIDE)(NOT SPECIFIED) [Suspect]
     Indication: HYPERTENSION
     Route: 048
     Dates: start: 20131205, end: 201312

REACTIONS (4)
  - Cough [None]
  - Rhinorrhoea [None]
  - Upper respiratory tract infection [None]
  - Blood pressure increased [None]
